FAERS Safety Report 8369951-X (Version None)
Quarter: 2012Q2

REPORT INFORMATION
  Report Type: 
  Country: None (occurrence: None)
  Receive Date: 20120518
  Receipt Date: 20120515
  Transmission Date: 20120825
  Serious: Yes (Hospitalization)
  Sender: FDA-Public Use
  Company Number: NL-PFIZER INC-2012101838

PATIENT
  Age: 36 Year
  Sex: Female
  Weight: 65 kg

DRUGS (3)
  1. FENTANYL DIHYDROGENCITRATE [Concomitant]
     Dosage: UNK
     Dates: end: 20120319
  2. LYRICA [Suspect]
     Indication: POST-TRAUMATIC NECK SYNDROME
     Dosage: 75 MG, 2X/DAY
     Dates: start: 20120319, end: 20120320
  3. OXYCONTIN [Concomitant]

REACTIONS (1)
  - METABOLIC ENCEPHALOPATHY [None]
